FAERS Safety Report 9143956 (Version 1)
Quarter: 2013Q1

REPORT INFORMATION
  Report Type: Report from Study
  Country: BG (occurrence: BG)
  Receive Date: 20130306
  Receipt Date: 20130306
  Transmission Date: 20140127
  Serious: Yes (Death, Hospitalization)
  Sender: FDA-Public Use
  Company Number: BG-ELI_LILLY_AND_COMPANY-BG201303001007

PATIENT
  Age: 58 Year
  Sex: Female
  Weight: 67 kg

DRUGS (1)
  1. GEMCITABINE HYDROCHLORIDE [Suspect]
     Indication: PERIPHERAL T-CELL LYMPHOMA UNSPECIFIED
     Dosage: 1800 MG, OTHER
     Route: 042
     Dates: start: 20121205, end: 20121212

REACTIONS (6)
  - Cardiopulmonary failure [Fatal]
  - Peripheral T-cell lymphoma unspecified [Fatal]
  - Renal failure [Fatal]
  - Hepatic encephalopathy [Fatal]
  - Sinus tachycardia [Recovered/Resolved]
  - Hepatotoxicity [Recovering/Resolving]
